FAERS Safety Report 4576510-3 (Version None)
Quarter: 2005Q1

REPORT INFORMATION
  Report Type: 
  Country: None (occurrence: None)
  Receive Date: 20050209
  Receipt Date: 20050207
  Transmission Date: 20050727
  Serious: Yes (Life-Threatening, Hospitalization, Disabling, Other)
  Sender: FDA-Public Use
  Company Number: US-MERCK-0502USA00671

PATIENT
  Age: 61 Year
  Sex: Female
  Weight: 40 kg

DRUGS (7)
  1. VIOXX [Suspect]
     Route: 065
     Dates: start: 20021008
  2. VASOTEC [Concomitant]
     Indication: ACUTE MYOCARDIAL INFARCTION
     Route: 048
     Dates: start: 20010701
  3. LASIX [Concomitant]
     Route: 048
     Dates: start: 20010701
  4. ZOCOR [Concomitant]
     Indication: ACUTE MYOCARDIAL INFARCTION
     Route: 048
     Dates: start: 20010701
  5. DIGOXIN [Concomitant]
     Indication: ACUTE MYOCARDIAL INFARCTION
     Route: 048
     Dates: start: 20010701
  6. ASPIRIN [Concomitant]
     Route: 048
     Dates: start: 20010701
  7. NITROGLYCERIN [Concomitant]
     Route: 065

REACTIONS (5)
  - AORTIC ATHEROSCLEROSIS [None]
  - CEREBROVASCULAR ACCIDENT [None]
  - DILATATION ATRIAL [None]
  - MITRAL VALVE INCOMPETENCE [None]
  - TREATMENT NONCOMPLIANCE [None]
